FAERS Safety Report 15619966 (Version 1)
Quarter: 2018Q4

REPORT INFORMATION
  Report Type: Spontaneous
  Country: GB (occurrence: GB)
  Receive Date: 20181115
  Receipt Date: 20181115
  Transmission Date: 20190205
  Serious: Yes (Life-Threatening, Other)
  Sender: FDA-Public Use
  Company Number: GB-TEVA-2018-GB-903551

PATIENT
  Age: 30 Year
  Sex: Male
  Weight: 105.5 kg

DRUGS (2)
  1. GABAPENTIN. [Suspect]
     Active Substance: GABAPENTIN
     Indication: NEURALGIA
     Route: 065
     Dates: start: 201304, end: 201306
  2. NOVOMIX [Concomitant]
     Active Substance: INSULIN ASPART
     Indication: DIABETES MELLITUS
     Dosage: 32 UNITS AND 38 UNITS.
     Route: 065
     Dates: start: 2007

REACTIONS (2)
  - Skin induration [Not Recovered/Not Resolved]
  - Tendon rupture [Recovered/Resolved]
